FAERS Safety Report 20334078 (Version 2)
Quarter: 2022Q1

REPORT INFORMATION
  Report Type: Spontaneous
  Country: US (occurrence: US)
  Receive Date: 20220113
  Receipt Date: 20220120
  Transmission Date: 20220423
  Serious: Yes (Other)
  Sender: FDA-Public Use
  Company Number: US-Blueprint Medicines Corporation-SP-US-2022-000061

PATIENT
  Age: 60 Year
  Sex: Male

DRUGS (1)
  1. AYVAKIT [Suspect]
     Active Substance: AVAPRITINIB
     Indication: Gastrointestinal stromal tumour
     Dosage: 1 TAB DAILY FOR 9 DAYS THEN OFF 3 DAYS AND REPEAT CYCLE
     Route: 048
     Dates: start: 20160801, end: 20210909

REACTIONS (13)
  - Neoplasm progression [Unknown]
  - Neoplasm malignant [Unknown]
  - Hallucination [Unknown]
  - Neoplasm [Unknown]
  - Nasopharyngitis [Unknown]
  - Tic [Unknown]
  - Dysphemia [Unknown]
  - Musculoskeletal disorder [Unknown]
  - Drug ineffective [Unknown]
  - Pain [Unknown]
  - Diarrhoea [Unknown]
  - Off label use [Unknown]
  - Amnesia [Unknown]
